FAERS Safety Report 5612538-X (Version None)
Quarter: 2008Q1

REPORT INFORMATION
  Report Type: 
  Country: None (occurrence: None)
  Receive Date: 20080201
  Receipt Date: 20080201
  Transmission Date: 20080703
  Serious: Yes (Other)
  Sender: FDA-Public Use
  Company Number: None

PATIENT
  Age: 50 Year
  Sex: Male
  Weight: 68.0396 kg

DRUGS (1)
  1. CHANTIX [Suspect]
     Indication: SMOKING CESSATION THERAPY
     Dosage: TAKING ONE TABLET IN THE MORNING AND AT NIGHT
     Dates: start: 20071122, end: 20080103

REACTIONS (4)
  - ABNORMAL DREAMS [None]
  - CONSTIPATION [None]
  - NAUSEA [None]
  - NIGHTMARE [None]
